FAERS Safety Report 8054859-X (Version None)
Quarter: 2012Q1

REPORT INFORMATION
  Report Type: 
  Country: None (occurrence: None)
  Receive Date: 20120119
  Receipt Date: 20120109
  Transmission Date: 20120608
  Serious: Yes (Hospitalization)
  Sender: FDA-Public Use
  Company Number: US-BAYER-2011-037270

PATIENT
  Age: 38 Year
  Sex: Female
  Weight: 68 kg

DRUGS (17)
  1. YAZ [Suspect]
     Indication: ACNE
     Dosage: UNK
     Dates: start: 20060101
  2. IBUPROFEN [Concomitant]
     Indication: ANTIINFLAMMATORY THERAPY
     Dosage: 600 MG, PRN (WHEN NEEDED)
  3. AXERT [Concomitant]
     Indication: MIGRAINE
     Dosage: UNK UNK, PRN (WHEN NEEDED)
     Dates: start: 19900101
  4. CHLOR-TRIMETON [Concomitant]
     Indication: MULTIPLE ALLERGIES
     Dosage: UNK UNK, PRN (WHEN NEEDED)
     Dates: start: 19800101
  5. ZOMIG [Concomitant]
     Indication: MIGRAINE
     Dosage: UNK
     Dates: start: 20081114
  6. SARAFEM [Concomitant]
     Dosage: 10 MG, QD (DAILY 2 WEEKS BEFORE MENSES)
     Dates: start: 20081114
  7. PROAIR HFA [Concomitant]
     Dosage: 90 ?G, UNK
     Dates: start: 20081119
  8. ACETAMINOPHEN [Concomitant]
     Indication: PAIN
     Dosage: PRN (WHEN NEDDED)
     Dates: start: 19800101
  9. CHLORPHENIRAMINE MALEATE [Concomitant]
     Indication: EYE PRURITUS
  10. YAZ [Suspect]
     Indication: PREMENSTRUAL SYNDROME
  11. YAZ [Suspect]
  12. FLUOXETINE HYDROCHLORIDE [Concomitant]
     Dosage: 10 MG, UNK
     Dates: start: 20081107
  13. PROZAC [Concomitant]
     Dosage: 10 MG, UNK
     Route: 048
     Dates: start: 20090224
  14. VITAMIN B12 NOS [Concomitant]
     Indication: VEGETARIAN
     Dosage: UNK
     Dates: start: 19900101
  15. ALBUTEROL [Concomitant]
     Dosage: 1 PUFF(S), PRN (EVERY 4 HOURS AS NEEDED)
     Dates: start: 20090224
  16. CHLORPHENIRAMINE MALEATE [Concomitant]
     Indication: RASH
     Dosage: 4 MG, PRN (AS NEEDED)
     Route: 048
     Dates: start: 20090224
  17. MULTI-VITAMINS [Concomitant]
     Dosage: 1 UNK, QD (1 TAB DAILY
     Route: 048
     Dates: start: 20090224

REACTIONS (8)
  - PULMONARY EMBOLISM [None]
  - PAIN [None]
  - ANHEDONIA [None]
  - INJURY [None]
  - GENERAL PHYSICAL HEALTH DETERIORATION [None]
  - ANXIETY [None]
  - EMOTIONAL DISTRESS [None]
  - DEEP VEIN THROMBOSIS [None]
